FAERS Safety Report 8232963-0 (Version None)
Quarter: 2012Q1

REPORT INFORMATION
  Report Type: 
  Country: None (occurrence: None)
  Receive Date: 20120325
  Receipt Date: 20120312
  Transmission Date: 20120608
  Serious: Yes (Death, Other)
  Sender: FDA-Public Use
  Company Number: PL-BRISTOL-MYERS SQUIBB COMPANY-16450983

PATIENT
  Age: 6 Decade
  Sex: Male

DRUGS (7)
  1. IMATINIB MESYLATE [Suspect]
     Indication: CHRONIC MYELOID LEUKAEMIA
     Dosage: DOSE REDUCED TO 300MG/D
     Dates: start: 20030101, end: 20071201
  2. NILOTINIB [Suspect]
     Indication: CHRONIC MYELOID LEUKAEMIA
     Dates: start: 20080101, end: 20080701
  3. DAUNORUBICIN HCL [Suspect]
     Indication: CHRONIC MYELOID LEUKAEMIA
  4. AZACITIDINE [Suspect]
     Indication: CHRONIC MYELOID LEUKAEMIA
  5. DASATINIB [Suspect]
     Indication: CHRONIC MYELOID LEUKAEMIA
     Dosage: THEN 80MG/D FOR 17 MONTHS
     Dates: start: 20081101, end: 20100701
  6. HYDROXYUREA [Suspect]
     Indication: CHRONIC MYELOID LEUKAEMIA
  7. CYTARABINE [Suspect]
     Indication: CHRONIC MYELOID LEUKAEMIA

REACTIONS (3)
  - PNEUMONIA [None]
  - NEOPLASM MALIGNANT [None]
  - ACUTE MYELOID LEUKAEMIA [None]
